FAERS Safety Report 6847466-5 (Version None)
Quarter: 2010Q3

REPORT INFORMATION
  Report Type: 
  Country: None (occurrence: None)
  Receive Date: 20100716
  Receipt Date: 20100705
  Transmission Date: 20110219
  Serious: Yes (Life-Threatening, Hospitalization, Other)
  Sender: FDA-Public Use
  Company Number: GB-PFIZER INC-2010083287

PATIENT
  Age: 55 Year
  Sex: Female

DRUGS (7)
  1. TOLTERODINE TARTRATE [Suspect]
     Indication: POLLAKIURIA
     Dosage: 2 MG, 2X/DAY
     Route: 048
     Dates: start: 20040610, end: 20100622
  2. CITALOPRAM [Suspect]
     Indication: DEPRESSION
     Dosage: 20 MG, 1X/DAY
     Route: 048
     Dates: start: 20100525, end: 20100624
  3. COD-LIVER OIL [Concomitant]
     Dosage: UNK
  4. MANEVAC [Concomitant]
     Dosage: UNK
  5. TRAMADOL [Concomitant]
     Dosage: UNK
  6. VITAMIN C [Concomitant]
     Dosage: UNK
  7. VITAMIN D [Concomitant]
     Dosage: UNK

REACTIONS (2)
  - CONVULSION [None]
  - HYPONATRAEMIA [None]
